FAERS Safety Report 5383306-1 (Version None)
Quarter: 2007Q3

REPORT INFORMATION
  Report Type: 
  Country: None (occurrence: None)
  Receive Date: 20070705
  Receipt Date: 20070622
  Transmission Date: 20080115
  Serious: Yes (Other)
  Sender: FDA-Public Use
  Company Number: FEI2007-1106

PATIENT
  Age: 37 Year
  Sex: Female

DRUGS (1)
  1. COPPER T [Suspect]
     Indication: CONTRACEPTION
     Dosage: INTRA-UTERINE
     Route: 015

REACTIONS (7)
  - BLADDER PERFORATION [None]
  - CALCULUS BLADDER [None]
  - DEVICE MIGRATION [None]
  - IATROGENIC INJURY [None]
  - IUCD COMPLICATION [None]
  - URINARY TRACT INFECTION [None]
  - UTERINE PERFORATION [None]
